FAERS Safety Report 8132108-1 (Version None)
Quarter: 2012Q1

REPORT INFORMATION
  Report Type: 
  Country: None (occurrence: None)
  Receive Date: 20120208
  Receipt Date: 20120131
  Transmission Date: 20120608
  Serious: Yes (Other)
  Sender: FDA-Public Use
  Company Number: 1000027591

PATIENT
  Age: 54 Year
  Sex: Male

DRUGS (2)
  1. AMBIEN [Concomitant]
  2. VIIBRYD [Suspect]
     Indication: DEPRESSION
     Dosage: 20 MG (20 MG, 1 IN 1 D), ORAL
     Route: 048
     Dates: start: 20120130

REACTIONS (4)
  - TREMOR [None]
  - SUICIDAL IDEATION [None]
  - DIZZINESS [None]
  - DIARRHOEA [None]
